FAERS Safety Report 5852787-9 (Version None)
Quarter: 2008Q3

REPORT INFORMATION
  Report Type: 
  Country: None (occurrence: None)
  Receive Date: 20080821
  Receipt Date: 20080811
  Transmission Date: 20090109
  Serious: Yes (Other)
  Sender: FDA-Public Use
  Company Number: US-MERCK-0803USA04519

PATIENT
  Age: 57 Year
  Sex: Female

DRUGS (5)
  1. FOSAMAX [Suspect]
     Route: 048
     Dates: start: 20000101, end: 20070101
  2. FOSAMAX PLUS D [Suspect]
     Indication: OSTEOPOROSIS PROPHYLAXIS
     Route: 048
     Dates: start: 20000101, end: 20070101
  3. NAPROXEN [Concomitant]
     Indication: ANTIINFLAMMATORY THERAPY
     Route: 065
     Dates: start: 20000101
  4. TRIAMTERENE [Concomitant]
     Route: 065
     Dates: start: 20020101
  5. HORMONES (UNSPECIFIED) [Concomitant]
     Route: 065
     Dates: start: 19990101

REACTIONS (12)
  - ANXIETY [None]
  - BRONCHITIS [None]
  - DEPRESSION [None]
  - GALLBLADDER DISORDER [None]
  - HYPERTENSION [None]
  - INSOMNIA [None]
  - OPEN FRACTURE [None]
  - OSTEOMYELITIS [None]
  - OSTEONECROSIS [None]
  - PHARYNGITIS [None]
  - RESORPTION BONE INCREASED [None]
  - SKIN LACERATION [None]
